FAERS Safety Report 9146900 (Version 1)
Quarter: 2013Q1

REPORT INFORMATION
  Report Type: Spontaneous
  Country: US (occurrence: None)
  Receive Date: 20130228
  Receipt Date: 20130228
  Transmission Date: 20140127
  Serious: Yes (Hospitalization)
  Sender: FDA-Public Use
  Company Number: None

PATIENT
  Sex: Male

DRUGS (1)
  1. SUTENT [Suspect]
     Indication: RENAL CANCER
     Dosage: 50MG DAILY FOR 4 WEEKS ON 2 PO
     Route: 048
     Dates: start: 20130122

REACTIONS (4)
  - Loss of consciousness [None]
  - Back pain [None]
  - Abdominal discomfort [None]
  - Vomiting [None]
